FAERS Safety Report 14278391 (Version 1)
Quarter: 2017Q4

REPORT INFORMATION
  Report Type: Spontaneous
  Country: FR (occurrence: FR)
  Receive Date: 20171211
  Receipt Date: 20171211
  Transmission Date: 20180321
  Serious: Yes (Other)
  Sender: FDA-Public Use
  Company Number: FR-OTSUKA-DJ20128202

PATIENT

DRUGS (1)
  1. ABILIFY [Suspect]
     Active Substance: ARIPIPRAZOLE
     Route: 065

REACTIONS (2)
  - Dyspnoea [Recovered/Resolved]
  - Palpitations [Recovered/Resolved]
